FAERS Safety Report 21458006 (Version 1)
Quarter: 2022Q4

REPORT INFORMATION
  Report Type: Spontaneous
  Country: GB (occurrence: GB)
  Receive Date: 20221014
  Receipt Date: 20221014
  Transmission Date: 20230113
  Serious: Yes (Other)
  Sender: FDA-Public Use
  Company Number: None

PATIENT
  Age: 32 Year
  Sex: Male

DRUGS (4)
  1. SERTRALINE [Suspect]
     Active Substance: SERTRALINE HYDROCHLORIDE
     Indication: Product used for unknown indication
     Dosage: 100MG, TWO DAILY 56 TABLET
  2. GABAPENTIN [Concomitant]
     Active Substance: GABAPENTIN
     Dosage: 300MG, ONE TO BE TAKEN TWICE A DAY 56 CAPSULE
  3. PREGABALIN [Concomitant]
     Active Substance: PREGABALIN
     Dosage: 100MG
  4. THIAMINE [Concomitant]
     Active Substance: THIAMINE
     Dosage: 100MG, ONE TO BE TAKEN THREE TIMES A DAY 84 TABLET

REACTIONS (1)
  - Arrhythmia [Recovered/Resolved]
